FAERS Safety Report 10030949 (Version 2)
Quarter: 2014Q1

REPORT INFORMATION
  Report Type: Spontaneous
  Country: HU (occurrence: HU)
  Receive Date: 20140323
  Receipt Date: 20140323
  Transmission Date: 20141002
  Serious: Yes (Death, Hospitalization, Other)
  Sender: FDA-Public Use
  Company Number: HU-MERCK-1403HUN008325

PATIENT
  Age: 15 Year
  Sex: Female

DRUGS (3)
  1. NOXAFIL [Suspect]
     Indication: ANTIFUNGAL PROPHYLAXIS
     Dosage: 2 X 200 MG (2X5 ML) DAILY
     Route: 048
     Dates: start: 201212, end: 201301
  2. ACYCLOVIR [Concomitant]
  3. TAZOCIN [Concomitant]

REACTIONS (5)
  - Aspartate aminotransferase increased [Unknown]
  - Alanine aminotransferase increased [Unknown]
  - Gamma-glutamyltransferase increased [Unknown]
  - Death [Fatal]
  - Graft versus host disease [Unknown]
